FAERS Safety Report 19361804 (Version 1)
Quarter: 2021Q2

REPORT INFORMATION
  Report Type: Report from Study
  Country: CA (occurrence: CA)
  Receive Date: 20210602
  Receipt Date: 20210602
  Transmission Date: 20210717
  Serious: Yes (Other)
  Sender: FDA-Public Use
  Company Number: PHHY2016CA002809

PATIENT
  Age: 78 Year
  Sex: Male

DRUGS (5)
  1. APO?METOPROLOL [Concomitant]
     Active Substance: METOPROLOL
     Indication: PRODUCT USED FOR UNKNOWN INDICATION
     Dosage: UNK
     Route: 065
  2. SANDOSTATIN LAR DEPOT [Suspect]
     Active Substance: OCTREOTIDE ACETATE
     Indication: CARCINOID TUMOUR
     Dosage: 30 MG, QMO (EVERY 4 WEEKS)
     Route: 030
     Dates: start: 20151210
  3. SANDOSTATIN LAR DEPOT [Suspect]
     Active Substance: OCTREOTIDE ACETATE
  4. SANDOSTATIN LAR DEPOT [Suspect]
     Active Substance: OCTREOTIDE ACETATE
     Dosage: 60 MG, QMO (ONCE A MONTH)
     Route: 030
     Dates: start: 20151210
  5. ADALAT [Concomitant]
     Active Substance: NIFEDIPINE
     Indication: PRODUCT USED FOR UNKNOWN INDICATION
     Dosage: UNK
     Route: 065

REACTIONS (15)
  - Weight decreased [Unknown]
  - Decreased appetite [Unknown]
  - Somnolence [Unknown]
  - Dysstasia [Unknown]
  - Contusion [Unknown]
  - Blood pressure decreased [Unknown]
  - Productive cough [Unknown]
  - Asthenia [Unknown]
  - Fall [Unknown]
  - Pain [Unknown]
  - General physical health deterioration [Unknown]
  - Gait disturbance [Unknown]
  - Constipation [Unknown]
  - Blood pressure systolic increased [Unknown]
  - Sputum discoloured [Unknown]

NARRATIVE: CASE EVENT DATE: 20160107
